FAERS Safety Report 24201023 (Version 1)
Quarter: 2024Q3

REPORT INFORMATION
  Report Type: Spontaneous
  Country: CN (occurrence: CN)
  Receive Date: 20240812
  Receipt Date: 20240812
  Transmission Date: 20241017
  Serious: Yes (Hospitalization, Other)
  Sender: ELI LILLY AND CO
  Company Number: CN-ELI_LILLY_AND_COMPANY-CN202407020052

PATIENT
  Age: 38 Year
  Sex: Female
  Weight: 62 kg

DRUGS (4)
  1. ABEMACICLIB [Suspect]
     Active Substance: ABEMACICLIB
     Indication: Breast cancer
     Dosage: 150 MG, BID
     Route: 048
     Dates: start: 20210611, end: 20240705
  2. FULVESTRANT [Concomitant]
     Active Substance: FULVESTRANT
     Indication: Breast cancer
     Dosage: 0.500 G, DAILY (28 DAYS)
     Route: 030
     Dates: start: 20230804, end: 20240601
  3. LEUPROLIDE ACETATE [Concomitant]
     Active Substance: ISOPROPYL ALCOHOL\LEUPROLIDE ACETATE
     Indication: Breast cancer
     Dosage: 3.75 MG, OTHER (ONCE EVERY 4 WEEKS)
     Route: 058
  4. DENOSUMAB [Concomitant]
     Active Substance: DENOSUMAB
     Indication: Breast cancer
     Dosage: 120 MG (28 DAYS)
     Route: 058
     Dates: start: 20210616, end: 20240716

REACTIONS (7)
  - Asthenia [Recovered/Resolved]
  - Drug-induced liver injury [Unknown]
  - Malignant neoplasm progression [Unknown]
  - Myelosuppression [Unknown]
  - Gamma-glutamyltransferase increased [Unknown]
  - Alanine aminotransferase increased [Unknown]
  - Aspartate aminotransferase increased [Unknown]

NARRATIVE: CASE EVENT DATE: 20240709
